FAERS Safety Report 5099617-3 (Version None)
Quarter: 2006Q3

REPORT INFORMATION
  Report Type: 
  Country: None (occurrence: None)
  Receive Date: 20060908
  Receipt Date: 20060831
  Transmission Date: 20061208
  Serious: Yes (Other)
  Sender: FDA-Public Use
  Company Number: 2006UW17265

PATIENT
  Age: 47 Year
  Sex: Female
  Weight: 117 kg

DRUGS (7)
  1. SEROQUEL [Suspect]
     Indication: MANIA
     Route: 048
     Dates: start: 20050101
  2. GENCICLOVIR [Concomitant]
  3. CALCIUM GLUCONATE [Concomitant]
  4. CALCITRIOL [Concomitant]
  5. LEVOTHYROXINE SODIUM [Concomitant]
  6. HYDROCHLOROTHIAZIDE [Concomitant]
  7. WELLBUTRIN [Concomitant]

REACTIONS (2)
  - EYE DISORDER [None]
  - VISUAL DISTURBANCE [None]
